FAERS Safety Report 9946437 (Version 1)
Quarter: 2014Q1

REPORT INFORMATION
  Report Type: Report from Study
  Country: US (occurrence: US)
  Receive Date: 20140303
  Receipt Date: 20140303
  Transmission Date: 20141002
  Serious: No
  Sender: FDA-Public Use
  Company Number: US-ABBVIE-13P-163-1063101-00

PATIENT
  Age: 39 Year
  Sex: Female
  Weight: 88.98 kg

DRUGS (2)
  1. HUMIRA [Suspect]
     Indication: ANKYLOSING SPONDYLITIS
     Dates: start: 2009
  2. METFORMIN [Concomitant]
     Indication: POLYCYSTIC OVARIES

REACTIONS (2)
  - Drug dose omission [Unknown]
  - Sinusitis [Recovered/Resolved]
